FAERS Safety Report 7597366-0 (Version None)
Quarter: 2011Q3

REPORT INFORMATION
  Report Type: 
  Country: None (occurrence: None)
  Receive Date: 20110708
  Receipt Date: 20110705
  Transmission Date: 20111222
  Serious: Yes (Other)
  Sender: FDA-Public Use
  Company Number: CHPA2011GB08845

PATIENT
  Age: 72 Year
  Sex: Female

DRUGS (3)
  1. GUAIFENESIN [Suspect]
     Indication: COUGH
     Dosage: 15 ML, BID
     Route: 048
     Dates: start: 20110616, end: 20110617
  2. GLUCOSAMINE [Concomitant]
     Dosage: UNK, UNK
     Route: 065
  3. VITAMIN A AND D [Concomitant]
     Dosage: UNK, UNK
     Route: 065

REACTIONS (3)
  - THROAT IRRITATION [None]
  - DYSPEPSIA [None]
  - ORAL DISCOMFORT [None]
